FAERS Safety Report 25515591 (Version 1)
Quarter: 2025Q3

REPORT INFORMATION
  Report Type: Spontaneous
  Country: EU (occurrence: EU)
  Receive Date: 20250704
  Receipt Date: 20250704
  Transmission Date: 20251020
  Serious: Yes (Other)
  Sender: EMD SERONO INC
  Company Number: EU-Merck Healthcare KGaA-2024053246

PATIENT
  Age: 35 Year
  Sex: Male

DRUGS (1)
  1. LEVOTHYROXINE [Suspect]
     Active Substance: LEVOTHYROXINE
     Indication: Autoimmune thyroiditis

REACTIONS (17)
  - Hemiparesis [Unknown]
  - Muscle twitching [Not Recovered/Not Resolved]
  - Occipital neuralgia [Unknown]
  - Myalgia [Not Recovered/Not Resolved]
  - Muscle contractions involuntary [Unknown]
  - Blood creatine phosphokinase increased [Unknown]
  - Brain fog [Recovered/Resolved]
  - White blood cell count increased [Unknown]
  - Dysphagia [Unknown]
  - Dysphonia [Unknown]
  - Dry throat [Unknown]
  - Imperception [Unknown]
  - Anxiety [Not Recovered/Not Resolved]
  - Blood thyroid stimulating hormone increased [Unknown]
  - Headache [Recovered/Resolved]
  - Nausea [Recovered/Resolved]
  - Wrong technique in product usage process [Unknown]
